FAERS Safety Report 18640718 (Version 2)
Quarter: 2020Q4

REPORT INFORMATION
  Report Type: Spontaneous
  Country: JP (occurrence: JP)
  Receive Date: 20201221
  Receipt Date: 20201225
  Transmission Date: 20210114
  Serious: Yes (Other)
  Sender: FDA-Public Use
  Company Number: JP-SA-2020SA316716

PATIENT

DRUGS (6)
  1. ANTEBATE [Concomitant]
     Active Substance: BETAMETHASONE DIPROPIONATE
     Indication: DERMATITIS ATOPIC
     Dosage: UNK
     Route: 061
  2. DUPIXENT [Suspect]
     Active Substance: DUPILUMAB
     Indication: DERMATITIS ATOPIC
     Dosage: 600 MG, 1X
     Route: 058
     Dates: start: 20201102, end: 20201102
  3. PROTOPIC [Concomitant]
     Active Substance: TACROLIMUS
     Indication: DERMATITIS ATOPIC
     Dosage: UNK
     Route: 061
  4. DUPIXENT [Suspect]
     Active Substance: DUPILUMAB
     Dosage: 300 MG, QOW
     Route: 058
     Dates: start: 20201116
  5. RUPAFIN [Concomitant]
     Active Substance: RUPATADINE FUMARATE
     Indication: DERMATITIS ATOPIC
     Dosage: 10 MG, QD
     Route: 065
     Dates: start: 20200918
  6. WHITE PETROLATUM [Concomitant]
     Active Substance: PETROLATUM
     Indication: DERMATITIS ATOPIC
     Dosage: UNK
     Route: 065

REACTIONS (5)
  - Purulent discharge [Unknown]
  - Skin ulcer [Not Recovered/Not Resolved]
  - Condition aggravated [Unknown]
  - Infection [Not Recovered/Not Resolved]
  - Furuncle [Unknown]

NARRATIVE: CASE EVENT DATE: 202011
